FAERS Safety Report 13026821 (Version 1)
Quarter: 2016Q4

REPORT INFORMATION
  Report Type: Spontaneous
  Country: US (occurrence: US)
  Receive Date: 20161214
  Receipt Date: 20161214
  Transmission Date: 20170207
  Serious: No
  Sender: FDA-Public Use
  Company Number: US-ASTRAZENECA-2016SF29595

PATIENT
  Age: 30598 Day
  Sex: Female
  Weight: 79.4 kg

DRUGS (8)
  1. PANTOPRAZOLE [Concomitant]
     Active Substance: PANTOPRAZOLE SODIUM
     Indication: GASTROINTESTINAL DISORDER
     Route: 048
  2. OXYCODONE [Concomitant]
     Active Substance: OXYCODONE
     Indication: PAIN
     Dosage: 10 MG, THREE TIMES A DAY AS NEEDED
     Route: 048
  3. AMLODIPINE [Concomitant]
     Active Substance: AMLODIPINE BESYLATE
     Indication: GASTROINTESTINAL DISORDER
     Route: 048
  4. CARVEDILOL. [Concomitant]
     Active Substance: CARVEDILOL
     Indication: HYPERTENSION
     Route: 048
  5. RANITIDINE. [Concomitant]
     Active Substance: RANITIDINE
     Indication: GASTROINTESTINAL DISORDER
     Route: 048
     Dates: start: 2016
  6. MOVANTIK [Suspect]
     Active Substance: NALOXEGOL OXALATE
     Indication: CONSTIPATION
     Dosage: 12.5 MG ONE TO TWO TABLETS DAILY AS NEEDED
     Route: 048
     Dates: start: 2014
  7. AMLODIPINE [Concomitant]
     Active Substance: AMLODIPINE BESYLATE
     Indication: HYPERTENSION
     Route: 048
  8. BENICAR [Concomitant]
     Active Substance: OLMESARTAN MEDOXOMIL
     Indication: HYPERTENSION
     Route: 048

REACTIONS (6)
  - Intentional product misuse [Unknown]
  - Dehydration [Unknown]
  - Blood electrolytes decreased [Unknown]
  - Drug effect decreased [Unknown]
  - Micturition disorder [Unknown]
  - Off label use [Unknown]

NARRATIVE: CASE EVENT DATE: 20161203
